FAERS Safety Report 10871611 (Version 1)
Quarter: 2015Q1

REPORT INFORMATION
  Report Type: Spontaneous
  Country: US (occurrence: US)
  Receive Date: 20150226
  Receipt Date: 20150226
  Transmission Date: 20150721
  Serious: Yes (Other)
  Sender: FDA-Public Use
  Company Number: PHHY2015US021756

PATIENT
  Age: 51 Year
  Sex: Female

DRUGS (1)
  1. MECLIZINE [Suspect]
     Active Substance: MECLIZINE\MECLIZINE HYDROCHLORIDE
     Indication: VERTIGO
     Route: 065

REACTIONS (5)
  - Visual acuity reduced [Recovering/Resolving]
  - Angle closure glaucoma [Recovered/Resolved]
  - Drug ineffective [Unknown]
  - Capsular block syndrome [Recovering/Resolving]
  - Myopia [Recovering/Resolving]
